FAERS Safety Report 12598060 (Version 2)
Quarter: 2016Q3

REPORT INFORMATION
  Report Type: Report from Study
  Country: AR (occurrence: AR)
  Receive Date: 20160727
  Receipt Date: 20160826
  Transmission Date: 20161109
  Serious: Yes (Hospitalization, Other)
  Sender: FDA-Public Use
  Company Number: PHHY2016AR102354

PATIENT
  Age: 8 Year
  Sex: Male

DRUGS (1)
  1. EXJADE [Suspect]
     Active Substance: DEFERASIROX
     Indication: THALASSAEMIA BETA
     Dosage: 1250 MG, QD
     Route: 065
     Dates: start: 20121201

REACTIONS (10)
  - Pyrexia [Recovered/Resolved]
  - Pyrexia [Recovered/Resolved]
  - Vitamin C deficiency [Unknown]
  - Hypovitaminosis [Unknown]
  - Antibody test abnormal [Recovered/Resolved]
  - Vitamin B complex deficiency [Unknown]
  - Nasopharyngitis [Unknown]
  - Viral infection [Recovered/Resolved]
  - Influenza [Recovered/Resolved]
  - Antibody test abnormal [Recovered/Resolved]

NARRATIVE: CASE EVENT DATE: 201605
